FAERS Safety Report 9722250 (Version 1)
Quarter: 2013Q4

REPORT INFORMATION
  Report Type: Spontaneous
  Country: US (occurrence: US)
  Receive Date: 20131202
  Receipt Date: 20131202
  Transmission Date: 20140711
  Serious: Yes (Death)
  Sender: FDA-Public Use
  Company Number: US-JNJFOC-20131112632

PATIENT
  Sex: 0

DRUGS (17)
  1. DOXORUBICIN HYDROCHLORIDE [Suspect]
     Indication: DIFFUSE LARGE B-CELL LYMPHOMA
     Route: 042
  2. RITUXIMAB [Suspect]
     Indication: DIFFUSE LARGE B-CELL LYMPHOMA
     Dosage: ON DAY 1
     Route: 042
  3. CYCLOPHOSPHAMIDE [Suspect]
     Indication: DIFFUSE LARGE B-CELL LYMPHOMA
     Dosage: FOR SIX DOSES ON DAYS 1-3
     Route: 042
  4. VINCRISTINE [Suspect]
     Indication: DIFFUSE LARGE B-CELL LYMPHOMA
     Dosage: 1.4 MG/M2 OR MAXIMUM 2 MG??INTRAVENOUSLY ON DAYS 5 AND 12,
     Route: 042
  5. DEXAMETHASONE [Suspect]
     Indication: DIFFUSE LARGE B-CELL LYMPHOMA
     Dosage: ON DAYS 2-5
     Route: 042
  6. METHOTREXATE [Suspect]
     Indication: DIFFUSE LARGE B-CELL LYMPHOMA
     Dosage: 200 MG/M2 OVER 2 H FOLLOWED BY 800 MG/??M2 OVER 22 H ON DAY 1,
     Route: 065
  7. CYTARABINE [Suspect]
     Indication: DIFFUSE LARGE B-CELL LYMPHOMA
     Dosage: 3 G/M2 EVERY 12 H FOR FOUR DOSES ON DAYS 3 AND 4, WITH A 21-DAY CYCLE
     Route: 065
  8. DEXAMETHASONE [Suspect]
     Indication: DIFFUSE LARGE B-CELL LYMPHOMA
     Dosage: ON DAYS 2-5
     Route: 048
  9. MESNA [Concomitant]
     Indication: SUPPORTIVE CARE
     Route: 042
  10. SODIUM BICARBONATE [Concomitant]
     Indication: SUPPORTIVE CARE
     Route: 048
  11. LEUCOVORIN [Concomitant]
     Indication: SUPPORTIVE CARE
     Route: 065
  12. PREDNISONE [Concomitant]
     Indication: SUPPORTIVE CARE
     Route: 047
  13. FILGRASTIM [Concomitant]
     Indication: INFECTION PROPHYLAXIS
  14. CIPROFLOXACIN [Concomitant]
     Indication: INFECTION PROPHYLAXIS
     Route: 065
  15. FLUCONAZOLE [Concomitant]
     Indication: INFECTION PROPHYLAXIS
     Route: 048
  16. LEUCOVORIN [Concomitant]
     Indication: SUPPORTIVE CARE
     Route: 065
  17. VALACYCLOVIR [Concomitant]
     Indication: PROPHYLAXIS
     Route: 048

REACTIONS (1)
  - Pulmonary embolism [Fatal]
